FAERS Safety Report 4906780-0 (Version None)
Quarter: 2006Q1

REPORT INFORMATION
  Report Type: 
  Country: None (occurrence: None)
  Receive Date: 20060209
  Receipt Date: 20060109
  Transmission Date: 20060701
  Serious: Yes (Hospitalization)
  Sender: FDA-Public Use
  Company Number: IL-ROCHE-433067

PATIENT
  Age: 55 Year
  Sex: Female
  Weight: 78 kg

DRUGS (13)
  1. DACLIZUMAB [Suspect]
     Route: 042
     Dates: start: 20031216, end: 20031216
  2. DACLIZUMAB [Suspect]
     Route: 042
     Dates: end: 20040209
  3. MYCOPHENOLATE MOFETIL [Suspect]
     Route: 048
     Dates: start: 20031216
  4. SIROLIMUS [Suspect]
     Route: 048
     Dates: start: 20031216
  5. OMEPRAZOLE [Concomitant]
     Dates: start: 20031216
  6. ELTROXIN [Concomitant]
  7. ATENOLOL [Concomitant]
     Dates: start: 20031216
  8. SULFAMETHOXAZOLE + TRIMETHOPRIM [Concomitant]
     Dates: start: 20031216
  9. NYSTATIN [Concomitant]
     Dates: start: 20031216
  10. CALCIUM GLUBIONATE [Concomitant]
  11. ALFACALCIDOL [Concomitant]
  12. AMLODIPINE BESYLATE [Concomitant]
  13. PREDNISONE TAB [Suspect]
     Route: 065
     Dates: start: 20031216

REACTIONS (5)
  - DYSPHASIA [None]
  - LARYNGITIS [None]
  - LEUKOPENIA [None]
  - PHARYNGOLARYNGEAL PAIN [None]
  - PYREXIA [None]
